FAERS Safety Report 13408146 (Version 1)
Quarter: 2017Q2

REPORT INFORMATION
  Report Type: Spontaneous
  Country: CA (occurrence: CA)
  Receive Date: 20170406
  Receipt Date: 20170406
  Transmission Date: 20170830
  Serious: Yes (Other)
  Sender: FDA-Public Use
  Company Number: CA-TEVA-755469ACC

PATIENT
  Sex: Male
  Weight: 38 kg

DRUGS (14)
  1. BUSULFAN. [Concomitant]
     Active Substance: BUSULFAN
  2. CICLOSPORIN [Concomitant]
     Active Substance: CYCLOSPORINE
  3. EPINEPHRINE. [Concomitant]
     Active Substance: EPINEPHRINE
  4. THIOGUANINE [Concomitant]
     Active Substance: THIOGUANINE
  5. ETOPOSIDE. [Suspect]
     Active Substance: ETOPOSIDE
     Route: 042
  6. HYDROCORTISONE. [Concomitant]
     Active Substance: HYDROCORTISONE
  7. MITOXANTRONE INJECTION [Concomitant]
  8. ETOPOSIDE. [Suspect]
     Active Substance: ETOPOSIDE
     Indication: ACUTE MYELOID LEUKAEMIA
     Route: 042
  9. CYTARABINE INJECTION [Suspect]
     Active Substance: CYTARABINE
     Route: 065
  10. DAUNOMYCIN [Suspect]
     Active Substance: DAUNORUBICIN
     Route: 065
  11. CYCLOPHOSPHAMIDE. [Suspect]
     Active Substance: CYCLOPHOSPHAMIDE
     Route: 065
  12. PREDNISONE. [Concomitant]
     Active Substance: PREDNISONE
  13. DEXAMETHASONE. [Concomitant]
     Active Substance: DEXAMETHASONE
  14. METHOTREXATE INJECTION, USP [Concomitant]
     Active Substance: METHOTREXATE

REACTIONS (1)
  - Cardiotoxicity [Unknown]
